FAERS Safety Report 8041209-8 (Version None)
Quarter: 2012Q1

REPORT INFORMATION
  Report Type: 
  Country: None (occurrence: None)
  Receive Date: 20120112
  Receipt Date: 20120110
  Transmission Date: 20120608
  Serious: Yes (Death)
  Sender: FDA-Public Use
  Company Number: NL-JNJFOC-20120103480

PATIENT
  Sex: Female
  Weight: 73 kg

DRUGS (3)
  1. LORAZEPAM [Concomitant]
     Route: 065
     Dates: start: 20111123
  2. YASMIN [Concomitant]
     Route: 048
     Dates: start: 20100622
  3. RISPERDAL [Suspect]
     Indication: PSYCHOTIC DISORDER
     Route: 048
     Dates: start: 20111121

REACTIONS (2)
  - EMBOLISM [None]
  - PULMONARY EMBOLISM [None]
